FAERS Safety Report 19840320 (Version 1)
Quarter: 2021Q3

REPORT INFORMATION
  Report Type: Report from Study
  Country: CN (occurrence: CN)
  Receive Date: 20210915
  Receipt Date: 20210915
  Transmission Date: 20211014
  Serious: Yes (Hospitalization)
  Sender: FDA-Public Use
  Company Number: CN-ASTRAZENECA-2021A701875

PATIENT
  Age: 49 Year
  Sex: Male
  Weight: 64 kg

DRUGS (3)
  1. CANAGLIFLOZIN [Concomitant]
     Active Substance: CANAGLIFLOZIN
     Indication: DIABETES MELLITUS
     Route: 048
     Dates: start: 20210822
  2. BYETTA [Suspect]
     Active Substance: EXENATIDE
     Indication: DIABETES MELLITUS
     Route: 058
     Dates: start: 20210806
  3. CANAGLIFLOZIN [Concomitant]
     Active Substance: CANAGLIFLOZIN
     Indication: DIABETES MELLITUS
     Route: 048
     Dates: start: 20210806

REACTIONS (6)
  - Nausea [Not Recovered/Not Resolved]
  - Blood glucose increased [Unknown]
  - Palpitations [Recovered/Resolved]
  - Confusional state [Unknown]
  - Blood glucose decreased [Unknown]
  - Hyperhidrosis [Recovered/Resolved]

NARRATIVE: CASE EVENT DATE: 202108
